FAERS Safety Report 6404593-4 (Version None)
Quarter: 2009Q4

REPORT INFORMATION
  Report Type: 
  Country: None (occurrence: None)
  Receive Date: 20091016
  Receipt Date: 20091009
  Transmission Date: 20100525
  Serious: Yes (Death, Hospitalization)
  Sender: FDA-Public Use
  Company Number: FR-WYE-H11520609

PATIENT
  Age: 76 Year
  Sex: Male

DRUGS (2)
  1. TORISEL [Suspect]
     Indication: RENAL CELL CARCINOMA
     Dosage: TWENTY-SEVEN INJECTIONS
     Route: 065
     Dates: start: 20080301
  2. TORISEL [Suspect]
     Indication: METASTASES TO LUNG

REACTIONS (2)
  - PYOPNEUMOTHORAX [None]
  - SEPSIS [None]
